FAERS Safety Report 22188829 (Version 2)
Quarter: 2023Q2

REPORT INFORMATION
  Report Type: Spontaneous
  Country: US (occurrence: US)
  Receive Date: 20230409
  Receipt Date: 20230519
  Transmission Date: 20230721
  Serious: No
  Sender: FDA-Public Use
  Company Number: US-ABBVIE-4326884

PATIENT
  Sex: Female

DRUGS (3)
  1. HUMIRA [Suspect]
     Active Substance: ADALIMUMAB
     Indication: Product used for unknown indication
     Route: 058
  2. COSENTYX [Concomitant]
     Active Substance: SECUKINUMAB
     Indication: Product used for unknown indication
     Route: 065
  3. CIBINQO [Concomitant]
     Active Substance: ABROCITINIB
     Indication: Product used for unknown indication

REACTIONS (4)
  - Eczema [Unknown]
  - Plantar fasciitis [Unknown]
  - Psoriasis [Unknown]
  - Dermatitis atopic [Unknown]
